FAERS Safety Report 9325282 (Version 3)
Quarter: 2013Q3

REPORT INFORMATION
  Report Type: Spontaneous
  Country: BE (occurrence: BE)
  Receive Date: 20130604
  Receipt Date: 20130923
  Transmission Date: 20140515
  Serious: Yes (Hospitalization)
  Sender: FDA-Public Use
  Company Number: BE-BIOGENIDEC-2013BI048176

PATIENT
  Age: 61 Year
  Sex: Female

DRUGS (14)
  1. TYSABRI [Suspect]
     Indication: PRODUCT USED FOR UNKNOWN INDICATION
     Route: 042
     Dates: start: 200910, end: 20130426
  2. TYSABRI [Suspect]
     Indication: PRODUCT USED FOR UNKNOWN INDICATION
     Route: 042
     Dates: start: 201306
  3. ALDACTAZINE [Concomitant]
  4. ASAFLOW [Concomitant]
  5. CYMBALTA [Concomitant]
  6. DAFLON [Concomitant]
  7. INEGY [Concomitant]
  8. LIORESAL [Concomitant]
  9. LORAMET [Concomitant]
  10. MINITRAN [Concomitant]
  11. RIVOTRIL [Concomitant]
  12. TILDIEM [Concomitant]
  13. TRIAZOLAM [Concomitant]
  14. PANTOMED [Concomitant]

REACTIONS (3)
  - Psychiatric decompensation [Recovered/Resolved]
  - Anxiety [Unknown]
  - Depression [Unknown]
